FAERS Safety Report 5910934-4 (Version None)
Quarter: 2008Q4

REPORT INFORMATION
  Report Type: 
  Country: None (occurrence: None)
  Receive Date: 20081007
  Receipt Date: 20080711
  Transmission Date: 20090506
  Serious: No
  Sender: FDA-Public Use
  Company Number: US-ASTRAZENECA-2008UW13972

PATIENT
  Age: 61 Year
  Sex: Female
  Weight: 72.1 kg

DRUGS (6)
  1. ARIMIDEX [Suspect]
     Route: 048
     Dates: start: 20060101
  2. OMEPRAZOLE [Concomitant]
  3. PROZAC [Concomitant]
  4. JANUMET [Concomitant]
  5. ASPIRIN [Concomitant]
  6. BONIVA [Concomitant]

REACTIONS (3)
  - BONE PAIN [None]
  - LICHEN PLANUS [None]
  - VULVOVAGINAL DRYNESS [None]
